FAERS Safety Report 10354350 (Version 1)
Quarter: 2014Q3

REPORT INFORMATION
  Report Type: Spontaneous
  Country: US (occurrence: None)
  Receive Date: 20140729
  Receipt Date: 20140729
  Transmission Date: 20150326
  Serious: Yes (Hospitalization)
  Sender: FDA-Public Use
  Company Number: None

PATIENT
  Age: 86 Year
  Sex: Female
  Weight: 55.34 kg

DRUGS (5)
  1. REGULAR VITAMINS [Concomitant]
  2. PROBIOTIC [Concomitant]
     Active Substance: PROBIOTICS NOS
  3. L-LYSINE [Concomitant]
     Active Substance: LYSINE
  4. PRAVASTATIN [Suspect]
     Active Substance: PRAVASTATIN\PRAVASTATIN SODIUM
     Indication: LOW DENSITY LIPOPROTEIN
     Route: 048
     Dates: start: 2012, end: 20131010
  5. CALCIUM500 WITH D3 [Concomitant]

REACTIONS (5)
  - Pain [None]
  - Liver function test abnormal [None]
  - Chest discomfort [None]
  - Cholelithiasis [None]
  - Hyperhidrosis [None]
